FAERS Safety Report 7874782-0 (Version None)
Quarter: 2011Q4

REPORT INFORMATION
  Report Type: 
  Country: None (occurrence: None)
  Receive Date: 20111031
  Receipt Date: 20111019
  Transmission Date: 20120403
  Serious: Yes (Hospitalization)
  Sender: FDA-Public Use
  Company Number: US-ELI_LILLY_AND_COMPANY-US201110004947

PATIENT
  Sex: Female

DRUGS (2)
  1. BYETTA [Suspect]
     Dosage: 10 UG, BID
     Route: 058
     Dates: end: 20110501
  2. BYETTA [Suspect]
     Indication: DIABETES MELLITUS
     Dosage: 5 UG, BID
     Route: 058

REACTIONS (13)
  - FALL [None]
  - HEPATIC ENZYME INCREASED [None]
  - WEIGHT DECREASED [None]
  - URINARY TRACT INFECTION [None]
  - HEAD INJURY [None]
  - MALAISE [None]
  - ASTHENIA [None]
  - PYREXIA [None]
  - BLOOD COUNT ABNORMAL [None]
  - DIZZINESS [None]
  - RENAL FUNCTION TEST ABNORMAL [None]
  - LABORATORY TEST ABNORMAL [None]
  - ABDOMINAL PAIN LOWER [None]
